FAERS Safety Report 21560613 (Version 2)
Quarter: 2022Q4

REPORT INFORMATION
  Report Type: Other
  Country: GB (occurrence: GB)
  Receive Date: 20221107
  Receipt Date: 20221116
  Transmission Date: 20230113
  Serious: Yes (Other)
  Sender: FDA-Public Use
  Company Number: GB-MACLEODS PHARMACEUTICALS SA (PTY) LTD-MAC2022038147

PATIENT

DRUGS (6)
  1. EMTRICITABINE\TENOFOVIR [Suspect]
     Active Substance: EMTRICITABINE\TENOFOVIR
     Indication: HIV infection
     Dosage: 1 DOSAGE FORM, QD (200/300 MG 1 DAILY DOSE (TABS/CAPS) (START DATE 19 JUL 2021)
     Route: 048
     Dates: start: 20210719
  2. ISENTRESS [Suspect]
     Active Substance: RALTEGRAVIR POTASSIUM
     Indication: HIV infection
     Dosage: 800 MILLIGRAM, QD (START DATE: 19 JUL-2021, STOP DATE- 28 DEC 2021)
     Route: 048
     Dates: start: 20210719, end: 20211228
  3. RITONAVIR [Suspect]
     Active Substance: RITONAVIR
     Indication: HIV infection
     Dosage: 100 MILLIGRAM, QD (START DATE 29 DEC 2021)
     Route: 048
     Dates: start: 20211229
  4. REYATAZ [Suspect]
     Active Substance: ATAZANAVIR SULFATE
     Indication: HIV infection
     Dosage: 300 MILLIGRAM, QD (START DATE 29 DEC 2021)
     Route: 048
     Dates: start: 20211229
  5. STRIBILD [Suspect]
     Active Substance: COBICISTAT\ELVITEGRAVIR\EMTRICITABINE\TENOFOVIR DISOPROXIL FUMARATE
     Indication: HIV infection
     Dosage: 1 DOSAGE FORM, QD (TAB/CAP, STOP DATE 18 JUL 2021)
     Route: 048
     Dates: start: 20210718
  6. TIVICAY [Suspect]
     Active Substance: DOLUTEGRAVIR SODIUM
     Indication: HIV infection
     Dosage: 50 MILLIGRAM, QD (START DATE 25 JAN 2022)
     Route: 048
     Dates: start: 20220125

REACTIONS (1)
  - Maternal exposure during pregnancy [Recovered/Resolved]
